FAERS Safety Report 14701822 (Version 1)
Quarter: 2018Q1

REPORT INFORMATION
  Report Type: Spontaneous
  Country: IT (occurrence: IT)
  Receive Date: 20180331
  Receipt Date: 20180331
  Transmission Date: 20180509
  Serious: Yes (Hospitalization)
  Sender: FDA-Public Use
  Company Number: IT-ROCHE-2095011

PATIENT
  Age: 73 Year
  Sex: Male

DRUGS (3)
  1. XELODA [Suspect]
     Active Substance: CAPECITABINE
     Indication: METAPLASTIC BREAST CARCINOMA
     Route: 048
     Dates: start: 20171204
  2. ENDOXAN [Suspect]
     Active Substance: CYCLOPHOSPHAMIDE
     Indication: METAPLASTIC BREAST CARCINOMA
     Route: 065
     Dates: start: 20171204
  3. NAVELBINE [Suspect]
     Active Substance: VINORELBINE TARTRATE
     Indication: METAPLASTIC BREAST CARCINOMA
     Route: 048
     Dates: start: 20171204

REACTIONS (1)
  - Pneumonitis [Recovering/Resolving]

NARRATIVE: CASE EVENT DATE: 20180213
